FAERS Safety Report 5724892-9 (Version None)
Quarter: 2008Q2

REPORT INFORMATION
  Report Type: 
  Country: None (occurrence: None)
  Receive Date: 20080429
  Receipt Date: 20080411
  Transmission Date: 20081010
  Serious: Yes (Life-Threatening)
  Sender: FDA-Public Use
  Company Number: 2008US001032

PATIENT
  Age: 18 Month
  Sex: Female
  Weight: 8.4 kg

DRUGS (10)
  1. AMBISOME [Suspect]
     Indication: PYREXIA
     Dosage: 25 MG UID/QD, IV
     Route: 042
     Dates: start: 20080304, end: 20080304
  2. CEFTAZIDIME PENTAHYDRATE [Concomitant]
  3. TIENAM (IMIPENEM, CILASTATIN SODIUM) [Concomitant]
  4. AMIKACIN [Concomitant]
  5. VANCOMYCIN HYDROCHLORIDE [Concomitant]
  6. BACTRIM [Concomitant]
  7. CYCLOPHOSPHAMIDE [Concomitant]
  8. ANDRIAMYCIN (DOXORUBICIN HYDROCHLORIDE) [Concomitant]
  9. VINCRISTINE [Concomitant]
  10. CARBOPLATIN [Concomitant]

REACTIONS (6)
  - ANAPHYLACTIC REACTION [None]
  - CYANOSIS [None]
  - DISTURBANCE IN ATTENTION [None]
  - LIVEDO RETICULARIS [None]
  - PULSE PRESSURE DECREASED [None]
  - TACHYCARDIA [None]
